FAERS Safety Report 7884433-7 (Version None)
Quarter: 2011Q4

REPORT INFORMATION
  Report Type: 
  Country: None (occurrence: None)
  Receive Date: 20111102
  Receipt Date: 20110927
  Transmission Date: 20120403
  Serious: No
  Sender: FDA-Public Use
  Company Number: US-ASTRAZENECA-2011SE57924

PATIENT
  Age: 21621 Day
  Sex: Male

DRUGS (1)
  1. VANDETANIB [Suspect]
     Route: 048
     Dates: start: 20110713

REACTIONS (5)
  - GENERALISED OEDEMA [None]
  - DRUG ERUPTION [None]
  - DRY SKIN [None]
  - SKIN EXFOLIATION [None]
  - PERIORBITAL OEDEMA [None]
